FAERS Safety Report 8094860-3 (Version None)
Quarter: 2012Q1

REPORT INFORMATION
  Report Type: 
  Country: None (occurrence: None)
  Receive Date: 20120129
  Receipt Date: 20120124
  Transmission Date: 20120608
  Serious: Yes (Other)
  Sender: FDA-Public Use
  Company Number: US-AMGEN-USASP2011031266

PATIENT
  Age: 71 Year
  Sex: Female
  Weight: 98.413 kg

DRUGS (19)
  1. ENBREL [Suspect]
     Dosage: 50 MG, QWK
     Dates: start: 20110512
  2. OMEPRAZOLE [Concomitant]
     Dosage: 20 MG, BID
     Route: 048
  3. LEVOTHYROXINE SODIUM [Concomitant]
     Dosage: 100 MUG, QD
     Route: 048
  4. GABAPENTIN [Concomitant]
     Dosage: 100 MG, QD
     Route: 048
  5. METOPROLOL TARTRATE [Concomitant]
     Dosage: 25 MG, BID
  6. WARFARIN SODIUM [Concomitant]
     Dosage: 5 MG, QD
  7. ENBREL [Suspect]
     Indication: RHEUMATOID ARTHRITIS
     Dosage: 50 MG, QWK
     Route: 058
     Dates: start: 20110505, end: 20110801
  8. CYMBALTA [Concomitant]
     Dosage: 60 MG, QD
     Route: 048
  9. AMLODIPINE BESYLATE [Concomitant]
     Dosage: 2.5 MG, QD
     Route: 048
  10. METFORMIN HCL [Concomitant]
     Dosage: 1000 MG, TID
  11. MICRO-K [Concomitant]
     Dosage: 16 MEQ, TID
     Route: 048
  12. FOLIC ACID [Concomitant]
     Dosage: 1 MG, QD
     Route: 048
  13. INDAPAMIDE [Concomitant]
     Dosage: 2.5 MG, BID
     Route: 048
  14. NOVOLOG [Concomitant]
     Dosage: 100 ML, UNK
     Route: 058
  15. METHOTREXATE [Concomitant]
     Dosage: 2.5 MG, QWK
     Route: 048
  16. EXTRA STRENGTH TYLENOL [Concomitant]
     Dosage: 1000 MG, PRN
  17. GLYBURIDE [Concomitant]
     Dosage: 5 MG, BID
  18. COZAAR [Concomitant]
     Dosage: 100 MG, QD
     Route: 048
  19. GUANFACINE HYDROCHLORIDE [Concomitant]
     Dosage: 1 MG, UNK
     Route: 048

REACTIONS (10)
  - PAIN IN EXTREMITY [None]
  - NECK PAIN [None]
  - INJECTION SITE PAIN [None]
  - INJECTION SITE INDURATION [None]
  - PAIN [None]
  - BACK PAIN [None]
  - THROMBOSIS [None]
  - INJECTION SITE SWELLING [None]
  - INJECTION SITE REACTION [None]
  - INJECTION SITE ERYTHEMA [None]
